FAERS Safety Report 4417995-2 (Version None)
Quarter: 2004Q3

REPORT INFORMATION
  Report Type: 
  Country: None (occurrence: None)
  Receive Date: 20040805
  Receipt Date: 20040607
  Transmission Date: 20050211
  Serious: Yes (Other)
  Sender: FDA-Public Use
  Company Number: 20040700340

PATIENT
  Sex: Female

DRUGS (1)
  1. DOBUTAMINE HCL [Suspect]
     Dates: start: 20020501, end: 20020504

REACTIONS (2)
  - INJURY [None]
  - MEDICATION ERROR [None]
